FAERS Safety Report 10137146 (Version 1)
Quarter: 2014Q2

REPORT INFORMATION
  Report Type: Spontaneous
  Country: US (occurrence: None)
  Receive Date: 20140428
  Receipt Date: 20140428
  Transmission Date: 20141212
  Serious: Yes (Life-Threatening, Hospitalization, Disabling, Other)
  Sender: FDA-Public Use
  Company Number: None

PATIENT
  Age: 28 Year
  Sex: Female

DRUGS (1)
  1. PHENTERMINE [Suspect]
     Indication: OBESITY
     Dosage: 1 PILL
     Dates: end: 20140425

REACTIONS (11)
  - Dry mouth [None]
  - Depression [None]
  - Abdominal pain upper [None]
  - Pallor [None]
  - Hallucination, visual [None]
  - Hallucination, auditory [None]
  - Skin disorder [None]
  - Hot flush [None]
  - Social avoidant behaviour [None]
  - Obsessive-compulsive disorder [None]
  - Sleep disorder [None]
